FAERS Safety Report 13499364 (Version 1)
Quarter: 2017Q2

REPORT INFORMATION
  Report Type: Spontaneous
  Country: US (occurrence: US)
  Receive Date: 20170501
  Receipt Date: 20170501
  Transmission Date: 20170830
  Serious: No
  Sender: FDA-Public Use
  Company Number: US-GLAXOSMITHKLINE-US2017062549

PATIENT
  Sex: Male

DRUGS (2)
  1. MUCINEX [Concomitant]
     Active Substance: GUAIFENESIN
  2. ANORO ELLIPTA [Suspect]
     Active Substance: UMECLIDINIUM BROMIDE\VILANTEROL TRIFENATATE
     Indication: PRODUCT USED FOR UNKNOWN INDICATION
     Dosage: UNK
     Route: 055
     Dates: start: 20170420

REACTIONS (2)
  - Device use error [Unknown]
  - Wrong technique in product usage process [Unknown]
